FAERS Safety Report 5162840-3 (Version None)
Quarter: 2006Q4

REPORT INFORMATION
  Report Type: 
  Country: None (occurrence: None)
  Receive Date: 20061201
  Receipt Date: 20010313
  Transmission Date: 20070319
  Serious: Yes (Hospitalization)
  Sender: FDA-Public Use
  Company Number: FR-GLAXOSMITHKLINE-B0101638B

PATIENT
  Sex: Male
  Weight: 1 kg

DRUGS (2)
  1. ZIDOVUDINE [Suspect]
     Indication: ANTIVIRAL PROPHYLAXIS
     Route: 065
  2. ZIDOVUDINE [Suspect]
     Indication: HIV INFECTION
     Route: 048

REACTIONS (18)
  - ABNORMAL BEHAVIOUR [None]
  - ANAEMIA [None]
  - APNOEA [None]
  - ARRHYTHMIA [None]
  - BRONCHOPULMONARY DYSPLASIA [None]
  - ECHOLALIA [None]
  - FEEDING DISORDER OF INFANCY OR EARLY CHILDHOOD [None]
  - FOETAL GROWTH RETARDATION [None]
  - GAIT DISTURBANCE [None]
  - GASTROOESOPHAGEAL REFLUX DISEASE [None]
  - INGUINAL HERNIA [None]
  - INTESTINAL FUNCTIONAL DISORDER [None]
  - NEUTROPENIA [None]
  - PREMATURE BABY [None]
  - RESPIRATORY DISTRESS [None]
  - RETINOPATHY [None]
  - SMALL FOR DATES BABY [None]
  - SPEECH DISORDER DEVELOPMENTAL [None]
